FAERS Safety Report 9536826 (Version 1)
Quarter: 2013Q3

REPORT INFORMATION
  Report Type: Spontaneous
  Country: RU (occurrence: RU)
  Receive Date: 20130919
  Receipt Date: 20130919
  Transmission Date: 20140515
  Serious: Yes (Life-Threatening)
  Sender: FDA-Public Use
  Company Number: RU-BAYER-2013-112756

PATIENT
  Age: 64 Year
  Sex: Male

DRUGS (3)
  1. ASPIRIN CARDIO [Suspect]
     Route: 048
  2. CORINFAR [Concomitant]
  3. ARIFON [Concomitant]

REACTIONS (2)
  - Angioedema [Recovered/Resolved]
  - Urticaria [Recovered/Resolved]
